FAERS Safety Report 8558527-7 (Version None)
Quarter: 2012Q3

REPORT INFORMATION
  Report Type: 
  Country: None (occurrence: None)
  Receive Date: 20120801
  Receipt Date: 20120716
  Transmission Date: 20120928
  Serious: No
  Sender: FDA-Public Use
  Company Number: US-ASTRAZENECA-2012SE38288

PATIENT
  Age: 72 Year
  Sex: Male
  Weight: 74.8 kg

DRUGS (18)
  1. ISOSORBATE [Concomitant]
  2. COMBIVENT [Concomitant]
  3. TERAZOSIN HYDROCHLORIDE [Concomitant]
  4. METFORMIN HYDROCHLORIDE [Concomitant]
  5. VITAMIN D [Concomitant]
  6. FINASTERIDE [Concomitant]
  7. FIBER THERAPY [Concomitant]
  8. SYMBICORT [Suspect]
     Indication: CHRONIC OBSTRUCTIVE PULMONARY DISEASE
     Dosage: 160/4.5, 2 PUFFS BID
     Route: 055
  9. LORATADINE [Concomitant]
  10. PROTONIX (PRN) [Concomitant]
  11. HYDROCHLOROT [Concomitant]
  12. SPIRIVA [Concomitant]
  13. ANDRODERM [Concomitant]
  14. SIMVASTATIN [Concomitant]
  15. AMILORIDE HYDROCHLORIDE [Concomitant]
  16. DILTIAZEM [Concomitant]
  17. IPRATROPIUM BROMIDE [Concomitant]
  18. GABAPENTIN [Concomitant]

REACTIONS (2)
  - DRUG INEFFECTIVE [None]
  - WHEEZING [None]
